FAERS Safety Report 5599320-7 (Version None)
Quarter: 2008Q1

REPORT INFORMATION
  Report Type: 
  Country: None (occurrence: None)
  Receive Date: 20080117
  Receipt Date: 20080108
  Transmission Date: 20080703
  Serious: Yes (Hospitalization, Other)
  Sender: FDA-Public Use
  Company Number: 2008US000154

PATIENT
  Age: 29 Year
  Sex: Male

DRUGS (4)
  1. PROGRAF [Suspect]
     Indication: LIVER TRANSPLANT
     Dosage: 2 MG, UID/QD, ORAL
     Route: 048
  2. MYCOPHENOLATE MOFETIL [Concomitant]
  3. PREDNISOLONE ACETATE [Concomitant]
  4. SIMULECT [Concomitant]

REACTIONS (10)
  - ADHESION [None]
  - CHOLESTASIS [None]
  - COLITIS ULCERATIVE [None]
  - ENCEPHALOPATHY [None]
  - HEPATIC CIRRHOSIS [None]
  - HEPATIC FAILURE [None]
  - LISTERIOSIS [None]
  - OESOPHAGEAL VARICES HAEMORRHAGE [None]
  - PERITONITIS [None]
  - RESPIRATORY DISTRESS [None]
